FAERS Safety Report 9557728 (Version 1)
Quarter: 2013Q3

REPORT INFORMATION
  Report Type: Spontaneous
  Country: US (occurrence: None)
  Receive Date: 20130726
  Receipt Date: 20130726
  Transmission Date: 20140515
  Serious: Yes (Hospitalization)
  Sender: FDA-Public Use
  Company Number: UTC-031531

PATIENT
  Age: 13 Year
  Sex: Female
  Weight: 52.5 kg

DRUGS (1)
  1. REMODULIN [Suspect]
     Indication: PRODUCT USED FOR UNKNOWN INDICATION
     Dosage: 237.6 UG/KG (0.165 UG/KG, 1 IN 1 MIN), INTRAVENOUS DRIP,
     Route: 041
     Dates: start: 20111129, end: 20130206

REACTIONS (1)
  - Sepsis [None]
